FAERS Safety Report 8535476-1 (Version None)
Quarter: 2012Q3

REPORT INFORMATION
  Report Type: 
  Country: None (occurrence: None)
  Receive Date: 20120718
  Receipt Date: 20120718
  Transmission Date: 20120928
  Serious: Yes (Other)
  Sender: FDA-Public Use
  Company Number: None

PATIENT
  Sex: Female
  Weight: 59.8748 kg

DRUGS (1)
  1. SPIRIVA [Suspect]
     Indication: RESPIRATORY DISORDER
     Dosage: 1 CAP DAILY
     Dates: start: 20120316, end: 20120320

REACTIONS (2)
  - TOOTH LOSS [None]
  - STOMATITIS [None]
